FAERS Safety Report 8218678-3 (Version None)
Quarter: 2012Q1

REPORT INFORMATION
  Report Type: 
  Country: None (occurrence: None)
  Receive Date: 20120319
  Receipt Date: 20120309
  Transmission Date: 20120608
  Serious: Yes (Hospitalization, Other)
  Sender: FDA-Public Use
  Company Number: PHFR2012GB000853

PATIENT
  Sex: Male
  Weight: 58 kg

DRUGS (1)
  1. CLOZARIL [Suspect]
     Indication: SCHIZOPHRENIA
     Dosage: 700
     Route: 048
     Dates: start: 20110822, end: 20120222

REACTIONS (7)
  - CIRCULATORY COLLAPSE [None]
  - APHAGIA [None]
  - ORTHOSTATIC HYPOTENSION [None]
  - IMPAIRED GASTRIC EMPTYING [None]
  - PALLOR [None]
  - DIZZINESS [None]
  - TACHYCARDIA [None]
